FAERS Safety Report 9633559 (Version 4)
Quarter: 2013Q4

REPORT INFORMATION
  Report Type: Report from Study
  Country: BR (occurrence: BR)
  Receive Date: 20131021
  Receipt Date: 20131129
  Transmission Date: 20140711
  Serious: Yes (Hospitalization, Other)
  Sender: FDA-Public Use
  Company Number: PHHY2013BR114864

PATIENT
  Age: 76 Year
  Sex: Female

DRUGS (7)
  1. EXELON PATCH [Suspect]
     Indication: DEMENTIA
     Dosage: 4.6 MG,DAILY (ONE 9 MG/5CM2 PATCH, EVERY 24 HOURS)
     Route: 062
  2. EXELON PATCH [Suspect]
     Dosage: 9.5 MG,DAILY (ONE 18 MG/10 CM2, EACH 24 HOURS)
     Route: 062
  3. EXELON PATCH [Suspect]
     Dosage: 13.3 MG, DAILY ( ONE 27MG/15CM2  PATCH, DAILY)
     Route: 062
  4. VENLAFAXINE SANDOZ [Suspect]
     Dosage: 2 DF, DAILY
     Route: 048
  5. VENLIFT [Suspect]
     Dosage: 1 DF, DAILY
     Route: 048
  6. LABIRIN [Suspect]
     Indication: LABYRINTHITIS
     Dosage: 8 MG, UNK
  7. CLARVISOL [Concomitant]
     Dosage: UNK UKN, TID

REACTIONS (16)
  - Cerebrovascular accident [Unknown]
  - Blood pressure increased [Unknown]
  - Cataract [Unknown]
  - Disorientation [Not Recovered/Not Resolved]
  - Feeling abnormal [Not Recovered/Not Resolved]
  - Drug intolerance [Unknown]
  - Memory impairment [Unknown]
  - Repetitive speech [Unknown]
  - Nail discolouration [Recovered/Resolved]
  - Blood pressure inadequately controlled [Unknown]
  - Somnolence [Recovered/Resolved]
  - Malaise [Recovered/Resolved]
  - Depression [Not Recovered/Not Resolved]
  - Application site reaction [Not Recovered/Not Resolved]
  - Headache [Not Recovered/Not Resolved]
  - Drug administration error [Unknown]
